FAERS Safety Report 13747506 (Version 2)
Quarter: 2018Q2

REPORT INFORMATION
  Report Type: Spontaneous
  Country: JP (occurrence: JP)
  Receive Date: 20170712
  Receipt Date: 20180412
  Transmission Date: 20180711
  Serious: Yes (Disabling)
  Sender: FDA-Public Use
  Company Number: JP-009507513-1707JPN000022J

PATIENT
  Age: 73 Year
  Sex: Male

DRUGS (3)
  1. TENELIA [Concomitant]
     Active Substance: TENELIGLIPTIN
     Indication: DIABETES MELLITUS
     Dosage: 20 MG, UNK
     Route: 048
  2. GRAZYNA TABLETS 50MG [Suspect]
     Active Substance: GRAZOPREVIR
     Indication: HEPATIC CIRRHOSIS
     Dosage: 100 MG, QD
     Route: 048
     Dates: start: 20170516, end: 20170613
  3. ERELSA TABLETS 50MG [Suspect]
     Active Substance: ELBASVIR
     Indication: HEPATIC CIRRHOSIS
     Dosage: 50 MG, QD
     Route: 048
     Dates: start: 20170516, end: 20170613

REACTIONS (1)
  - Eyelid ptosis [Not Recovered/Not Resolved]

NARRATIVE: CASE EVENT DATE: 20170612
